FAERS Safety Report 8317490-4 (Version None)
Quarter: 2012Q2

REPORT INFORMATION
  Report Type: 
  Country: None (occurrence: None)
  Receive Date: 20120427
  Receipt Date: 20120419
  Transmission Date: 20120825
  Serious: Yes (Life-Threatening, Hospitalization)
  Sender: FDA-Public Use
  Company Number: CA-JNJFOC-20120409227

PATIENT
  Sex: Female
  Weight: 106.6 kg

DRUGS (1)
  1. REMICADE [Suspect]
     Indication: PSORIASIS
     Dates: start: 20120101

REACTIONS (2)
  - CARDIAC FAILURE CONGESTIVE [None]
  - MYOCARDIAL INFARCTION [None]
